FAERS Safety Report 8374282-8 (Version None)
Quarter: 2012Q2

REPORT INFORMATION
  Report Type: 
  Country: None (occurrence: None)
  Receive Date: 20120518
  Receipt Date: 20120518
  Transmission Date: 20120825
  Serious: Yes (Disabling, Other)
  Sender: FDA-Public Use
  Company Number: None

PATIENT
  Sex: Male
  Weight: 77.1115 kg

DRUGS (1)
  1. PROPECIA [Suspect]
     Indication: ALOPECIA
     Dosage: SOMETIME IN 2007 AND 2008

REACTIONS (6)
  - ERECTILE DYSFUNCTION [None]
  - IMPAIRED WORK ABILITY [None]
  - LOSS OF LIBIDO [None]
  - DEPRESSION [None]
  - GYNAECOMASTIA [None]
  - FATIGUE [None]
